FAERS Safety Report 5311482-5 (Version None)
Quarter: 2007Q2

REPORT INFORMATION
  Report Type: 
  Country: None (occurrence: None)
  Receive Date: 20070430
  Receipt Date: 20070424
  Transmission Date: 20071010
  Serious: Yes (Hospitalization)
  Sender: FDA-Public Use
  Company Number: DK-AVENTIS-200713603GDDC

PATIENT
  Age: 47 Year
  Sex: Female
  Weight: 94 kg

DRUGS (1)
  1. TELFAST                            /01314201/ [Suspect]
     Indication: URTICARIA
     Dosage: DOSE: 180 MG X3
     Route: 048
     Dates: start: 20030810, end: 20030818

REACTIONS (1)
  - HEART RATE DECREASED [None]
